FAERS Safety Report 8298272-9 (Version None)
Quarter: 2012Q2

REPORT INFORMATION
  Report Type: 
  Country: None (occurrence: None)
  Receive Date: 20120419
  Receipt Date: 20120322
  Transmission Date: 20120825
  Serious: Yes (Other)
  Sender: FDA-Public Use
  Company Number: US-BRISTOL-MYERS SQUIBB COMPANY-16365918

PATIENT
  Age: 68 Year
  Sex: Male

DRUGS (1)
  1. YERVOY [Suspect]
     Indication: METASTATIC MALIGNANT MELANOMA
     Dosage: LAST DOSE: JAN2012.
     Dates: start: 20111215

REACTIONS (3)
  - HYPOTENSION [None]
  - PRURITUS [None]
  - GASTROINTESTINAL HAEMORRHAGE [None]
